FAERS Safety Report 9587981 (Version 3)
Quarter: 2014Q1

REPORT INFORMATION
  Report Type: Report from Study
  Country: DE (occurrence: DE)
  Receive Date: 20131003
  Receipt Date: 20140220
  Transmission Date: 20141002
  Serious: Yes (Other)
  Sender: FDA-Public Use
  Company Number: PHHY2013DE069071

PATIENT
  Sex: Female

DRUGS (1)
  1. AFINITOR [Suspect]
     Route: 048
     Dates: start: 20130117

REACTIONS (11)
  - Convulsion [Recovered/Resolved]
  - Nasal dryness [Recovered/Resolved]
  - Disturbance in attention [Not Recovered/Not Resolved]
  - Skin fissures [Recovered/Resolved]
  - Pain in extremity [Recovered/Resolved]
  - Muscle spasms [Recovered/Resolved]
  - Eyelid oedema [Recovered/Resolved]
  - Fatigue [Not Recovered/Not Resolved]
  - Rhinitis [Recovered/Resolved]
  - Aphthous stomatitis [Recovered/Resolved]
  - Anaemia [Recovered/Resolved]
